FAERS Safety Report 14884676 (Version 2)
Quarter: 2018Q2

REPORT INFORMATION
  Report Type: Spontaneous
  Country: US (occurrence: US)
  Receive Date: 20180511
  Receipt Date: 20180523
  Transmission Date: 20180711
  Serious: Yes (Hospitalization, Other)
  Sender: FDA-Public Use
  Company Number: US-HERITAGE PHARMACEUTICALS-2018HTG00096

PATIENT
  Age: 86 Year
  Sex: Female
  Weight: 58.5 kg

DRUGS (20)
  1. LASIX [Concomitant]
     Active Substance: FUROSEMIDE
     Dosage: 40 MG, 1X/DAY
  2. ASPIRIN. [Concomitant]
     Active Substance: ASPIRIN
     Dosage: 81 MG, 1X/DAY
  3. PLAVIX [Concomitant]
     Active Substance: CLOPIDOGREL BISULFATE
     Dosage: 75 MG, 1X/DAY
  4. VITAMIN B12 [Concomitant]
     Active Substance: CYANOCOBALAMIN
     Dosage: 1000 ?G, 1X/DAY
  5. HUMALOG [Concomitant]
     Active Substance: INSULIN LISPRO
     Dosage: 100 U, 1X/DAY BEFORE DINNER
  6. ALLOPURINOL. [Concomitant]
     Active Substance: ALLOPURINOL
     Dosage: 100 MG, 1X/DAY
     Dates: end: 2017
  7. HYDRALAZINE HYDROCHLORIDE. [Suspect]
     Active Substance: HYDRALAZINE HYDROCHLORIDE
     Indication: HYPERTENSION
     Dosage: 25 MG, 4X/DAY
     Route: 048
     Dates: start: 2016, end: 20180424
  8. HYDRALAZINE HYDROCHLORIDE. [Suspect]
     Active Substance: HYDRALAZINE HYDROCHLORIDE
     Indication: HYPERTENSION
     Dosage: 50 MG, 2X/DAY IN THE MORNING AND AT DINNER
     Route: 048
     Dates: start: 20180425
  9. HYDRALAZINE HYDROCHLORIDE. [Suspect]
     Active Substance: HYDRALAZINE HYDROCHLORIDE
     Dosage: 25 MG, 2X/DAY AT LUNCH AND BEDTIME
     Route: 048
     Dates: start: 20180425
  10. BIOTIN [Concomitant]
     Active Substance: BIOTIN
     Dosage: 5 MG, 1X/DAY
  11. VITAMIN D [Concomitant]
     Active Substance: CHOLECALCIFEROL
     Dosage: 200 U, 1X/DAY
  12. ISOSORBIDE MONONITRATE. [Concomitant]
     Active Substance: ISOSORBIDE MONONITRATE
     Dosage: 180 MG, 1X/DAY AT BEDTIME
  13. ISRADIPINE. [Concomitant]
     Active Substance: ISRADIPINE
     Dosage: 5 MG, 2X/DAY
  14. SECTRAL [Concomitant]
     Active Substance: ACEBUTOLOL HYDROCHLORIDE
     Dosage: 200 MG, 2X/DAY
     Dates: end: 2017
  15. VITAMIN E [Concomitant]
     Active Substance: .ALPHA.-TOCOPHEROL
     Dosage: 400 U, 1X/DAY
  16. LANTUS [Concomitant]
     Active Substance: INSULIN GLARGINE
     Dosage: 6 U, 1X/DAY BEFORE BREAKFAST
  17. CRESTOR [Concomitant]
     Active Substance: ROSUVASTATIN CALCIUM
     Dosage: 40 MG, 1X/DAY AT BEDTIME
  18. CALCITRIOL. [Concomitant]
     Active Substance: CALCITRIOL
     Dosage: 25 ?G, 1X/DAY
  19. NITROGLYCERIN. [Concomitant]
     Active Substance: NITROGLYCERIN
     Dosage: UNK, AS NEEDED
  20. BRILINTA [Concomitant]
     Active Substance: TICAGRELOR

REACTIONS (30)
  - Hypertension [Recovered/Resolved]
  - Pneumonia [Recovered/Resolved]
  - Paraesthesia [Not Recovered/Not Resolved]
  - Blood pressure inadequately controlled [Recovering/Resolving]
  - Vertigo positional [Unknown]
  - Angiopathy [Unknown]
  - Weight decreased [Not Recovered/Not Resolved]
  - Tinnitus [Unknown]
  - Essential hypertension [Recovered/Resolved]
  - Heart rate increased [Recovered/Resolved]
  - Heart rate decreased [Not Recovered/Not Resolved]
  - Renal mass [Unknown]
  - Discomfort [Unknown]
  - Dyslipidaemia [Unknown]
  - Pruritus [Unknown]
  - Neuropathy peripheral [Unknown]
  - Chest discomfort [Not Recovered/Not Resolved]
  - Burning sensation [Recovered/Resolved]
  - Hypoaesthesia [Not Recovered/Not Resolved]
  - Peripheral arterial occlusive disease [Unknown]
  - Azotaemia [Unknown]
  - Cerebrovascular accident [Unknown]
  - Restlessness [Unknown]
  - Fear [Unknown]
  - Headache [Not Recovered/Not Resolved]
  - Anxiety [Unknown]
  - Hypotension [Recovered/Resolved]
  - Alopecia [Not Recovered/Not Resolved]
  - Nervous system disorder [Not Recovered/Not Resolved]
  - Cardiovascular disorder [Unknown]

NARRATIVE: CASE EVENT DATE: 2017
